FAERS Safety Report 9218966 (Version 1)
Quarter: 2013Q2

REPORT INFORMATION
  Report Type: Spontaneous
  Country: US (occurrence: None)
  Receive Date: 20130405
  Receipt Date: 20130405
  Transmission Date: 20140414
  Serious: Yes (Other)
  Sender: FDA-Public Use
  Company Number: None

PATIENT
  Age: 19 Year
  Sex: Male

DRUGS (2)
  1. KLONIPIN [Suspect]
     Dosage: 1 DOSE BID PO
     Route: 048
     Dates: start: 20100416
  2. KLONIPIN [Suspect]
     Indication: MYOCLONIC EPILEPSY
     Dosage: 1 DOSE BID PO
     Route: 048
     Dates: start: 20100416

REACTIONS (1)
  - Product substitution issue [None]
